FAERS Safety Report 11146570 (Version 2)
Quarter: 2016Q1

REPORT INFORMATION
  Report Type: Spontaneous
  Country: US (occurrence: US)
  Receive Date: 20150528
  Receipt Date: 20160202
  Transmission Date: 20160525
  Serious: Yes (Other)
  Sender: FDA-Public Use
  Company Number: US-TEVA-565903USA

PATIENT
  Age: 47 Year
  Sex: Female
  Weight: 64.47 kg

DRUGS (1)
  1. MYCOPHENOLATE MOFETIL. [Suspect]
     Active Substance: MYCOPHENOLATE MOFETIL
     Indication: SYSTEMIC LUPUS ERYTHEMATOSUS
     Route: 048
     Dates: start: 201307

REACTIONS (3)
  - Breast cancer [Unknown]
  - Urine abnormality [Unknown]
  - Breast mass [Unknown]

NARRATIVE: CASE EVENT DATE: 201307
